FAERS Safety Report 8267610-5 (Version None)
Quarter: 2012Q2

REPORT INFORMATION
  Report Type: 
  Country: None (occurrence: None)
  Receive Date: 20120409
  Receipt Date: 20120404
  Transmission Date: 20120825
  Serious: Yes (Hospitalization)
  Sender: FDA-Public Use
  Company Number: US-JNJFOC-20120402207

PATIENT
  Age: 6 Decade
  Sex: Female

DRUGS (3)
  1. STATICIN [Concomitant]
     Route: 065
  2. STELARA [Suspect]
     Indication: PSORIASIS
     Route: 058
  3. ISONIAZID [Concomitant]
     Indication: TUBERCULOSIS
     Route: 065

REACTIONS (1)
  - HEPATIC FAILURE [None]
